FAERS Safety Report 21490599 (Version 4)
Quarter: 2023Q1

REPORT INFORMATION
  Report Type: Spontaneous
  Country: US (occurrence: US)
  Receive Date: 20221021
  Receipt Date: 20230121
  Transmission Date: 20230417
  Serious: Yes (Hospitalization, Other)
  Sender: FDA-Public Use
  Company Number: US-UNITED THERAPEUTICS-UNT-2022-024745

PATIENT
  Sex: Female
  Weight: 64.399 kg

DRUGS (11)
  1. REMODULIN [Suspect]
     Active Substance: TREPROSTINIL
     Indication: Pulmonary arterial hypertension
     Dosage: UNK, CONTINUING
     Route: 041
     Dates: start: 20210804, end: 20221103
  2. REMODULIN [Suspect]
     Active Substance: TREPROSTINIL
     Dosage: 0.100 ?G/KG, CONTINUING
     Route: 041
  3. REMODULIN [Suspect]
     Active Substance: TREPROSTINIL
     Dosage: UNK, CONTINUING
     Route: 041
  4. REMODULIN [Suspect]
     Active Substance: TREPROSTINIL
     Dosage: 0.092 ?G/KG, CONTINUING
     Route: 041
  5. REMODULIN [Suspect]
     Active Substance: TREPROSTINIL
     Indication: Pulmonary arterial hypertension
     Dosage: UNK, CONTINUING
     Route: 058
     Dates: start: 20221031
  6. REMODULIN [Suspect]
     Active Substance: TREPROSTINIL
     Dosage: 0.100 ?G/KG (PHARMACY PRE-FILLED WITH 3 ML PER CASSETTE, AT A PUMP RATE OF 47 MCL PER HOUR), CONTINU
     Route: 058
     Dates: start: 2022
  7. REMODULIN [Suspect]
     Active Substance: TREPROSTINIL
     Dosage: UNK, CONTINUING
     Route: 058
     Dates: start: 2022
  8. REMODULIN [Suspect]
     Active Substance: TREPROSTINIL
     Dosage: UNK (RESTARTED DOSE), CONTINUING
     Route: 058
     Dates: start: 202211
  9. REMODULIN [Suspect]
     Active Substance: TREPROSTINIL
     Dosage: UNK, CONTINUING
     Route: 058
  10. TADALAFIL [Concomitant]
     Active Substance: TADALAFIL
     Indication: Product used for unknown indication
     Dosage: UNK
     Route: 065
  11. LETAIRIS [Concomitant]
     Active Substance: AMBRISENTAN
     Indication: Product used for unknown indication
     Dosage: UNK
     Route: 065

REACTIONS (23)
  - Hypotension [Unknown]
  - COVID-19 pneumonia [Unknown]
  - Sepsis [Unknown]
  - Pneumonia [Unknown]
  - Clostridium difficile infection [Unknown]
  - Vomiting [Unknown]
  - Pyrexia [Unknown]
  - Post procedural haemorrhage [Unknown]
  - Retroperitoneal haemorrhage [Unknown]
  - Pneumothorax [Unknown]
  - Hepatic cirrhosis [Unknown]
  - Weight decreased [Not Recovered/Not Resolved]
  - Palpitations [Unknown]
  - Infusion site pain [Unknown]
  - Infusion site erythema [Unknown]
  - Infusion site inflammation [Unknown]
  - Hepatic lesion [Unknown]
  - Infusion site swelling [Unknown]
  - Infusion site mass [Unknown]
  - Device issue [Unknown]
  - Device failure [Recovered/Resolved]
  - Product administration interrupted [Recovered/Resolved]
  - Diarrhoea [Unknown]

NARRATIVE: CASE EVENT DATE: 20220101
